FAERS Safety Report 9019611 (Version 1)
Quarter: 2013Q1

REPORT INFORMATION
  Report Type: Spontaneous
  Country: US (occurrence: US)
  Receive Date: 20130118
  Receipt Date: 20130118
  Transmission Date: 20140127
  Serious: Yes (Hospitalization)
  Sender: FDA-Public Use
  Company Number: US-SANOFI-AVENTIS-2012SA033510

PATIENT
  Age: 71 Year
  Sex: Male
  Weight: 92 kg

DRUGS (12)
  1. LASIX [Suspect]
     Indication: HYPERTENSION
     Route: 048
     Dates: start: 20110113
  2. INVESTIGATIONAL DRUG [Suspect]
     Indication: DIABETIC RETINAL OEDEMA
     Route: 042
     Dates: start: 20111220
  3. SITAGLIPTIN PHOSPHATE [Concomitant]
     Indication: DIABETES MELLITUS
     Dates: start: 20110224
  4. AMLODIPINE [Concomitant]
     Indication: HYPERTENSION
  5. CONIEL [Concomitant]
     Dates: start: 20110113
  6. IRBESARTAN [Concomitant]
     Dates: start: 20011104
  7. IRBESARTAN [Concomitant]
     Dates: start: 20101104
  8. CARDENALIN [Concomitant]
     Indication: HYPERTENSION
     Dates: start: 20110331
  9. CRESTOR /UNK/ [Concomitant]
     Indication: HYPERLIPIDAEMIA
     Dates: start: 20101104
  10. LYRICA [Concomitant]
     Indication: NEUROPATHY PERIPHERAL
     Dates: start: 20110512
  11. SENNA [Concomitant]
     Indication: CONSTIPATION
     Dates: start: 20110526
  12. MAGNESIUM [Concomitant]
     Indication: CONSTIPATION

REACTIONS (1)
  - Dehydration [Recovering/Resolving]
